FAERS Safety Report 4607354-1 (Version None)
Quarter: 2005Q1

REPORT INFORMATION
  Report Type: 
  Country: None (occurrence: None)
  Receive Date: 20050311
  Receipt Date: 20050311
  Transmission Date: 20050727
  Serious: Yes (Life-Threatening, Hospitalization)
  Sender: FDA-Public Use
  Company Number: None

PATIENT
  Age: 54 Year
  Sex: Male
  Weight: 65.7716 kg

DRUGS (3)
  1. ZETIA [Suspect]
     Indication: HYPERCHOLESTEROLAEMIA
     Dosage: 10 MG PO DAILY
     Route: 048
     Dates: start: 20040102, end: 20050205
  2. NEXIUM [Concomitant]
  3. ASPIRIN [Concomitant]

REACTIONS (1)
  - PANCREATITIS [None]
